FAERS Safety Report 9314806 (Version 1)
Quarter: 2013Q2

REPORT INFORMATION
  Report Type: Report from Study
  Country: CA (occurrence: CA)
  Receive Date: 20130529
  Receipt Date: 20130529
  Transmission Date: 20140414
  Serious: Yes (Other)
  Sender: FDA-Public Use
  Company Number: CA-JNJFOC-20130516444

PATIENT
  Age: 28 Year
  Sex: Female
  Weight: 69.4 kg

DRUGS (4)
  1. REMICADE [Suspect]
     Indication: CROHN^S DISEASE
     Route: 042
     Dates: start: 20110330
  2. REACTINE [Concomitant]
     Route: 065
  3. IMODIUM [Concomitant]
     Route: 065
  4. IRON INFUSION [Concomitant]
     Dosage: IRON INFUSION
     Route: 065

REACTIONS (2)
  - Haematemesis [Recovered/Resolved]
  - Dyspepsia [Recovered/Resolved]
